FAERS Safety Report 6138725-2 (Version None)
Quarter: 2009Q1

REPORT INFORMATION
  Report Type: 
  Country: None (occurrence: None)
  Receive Date: 20090331
  Receipt Date: 20090324
  Transmission Date: 20090719
  Serious: Yes (Other)
  Sender: FDA-Public Use
  Company Number: US-JNJFOC-20090204768

PATIENT
  Sex: Male
  Weight: 96.16 kg

DRUGS (4)
  1. INVEGA [Suspect]
     Indication: PSYCHOTIC DISORDER
     Route: 048
  2. GEODON [Suspect]
     Indication: PSYCHOTIC DISORDER
  3. KLONOPIN [Concomitant]
     Indication: ANXIETY
  4. LITHOBID [Concomitant]
     Indication: DRUG USE FOR UNKNOWN INDICATION

REACTIONS (1)
  - LARYNGOSPASM [None]
